FAERS Safety Report 13472508 (Version 4)
Quarter: 2017Q4

REPORT INFORMATION
  Report Type: Spontaneous
  Country: GB (occurrence: GB)
  Receive Date: 20170424
  Receipt Date: 20171009
  Transmission Date: 20180320
  Serious: Yes (Other)
  Sender: FDA-Public Use
  Company Number: GB-BAYER-2017-041300

PATIENT
  Age: 30 Year
  Sex: Female

DRUGS (1)
  1. MIRENA [Suspect]
     Active Substance: LEVONORGESTREL
     Dosage: 20 MCG/24HR, CONT
     Route: 015
     Dates: end: 20161207

REACTIONS (9)
  - Embedded device [Unknown]
  - Complication of device removal [None]
  - Device breakage [Unknown]
  - Gynaecological chlamydia infection [Unknown]
  - Device use issue [None]
  - Dyspareunia [None]
  - Bacterial vaginosis [None]
  - Coital bleeding [None]
  - Device difficult to use [None]

NARRATIVE: CASE EVENT DATE: 2016
